FAERS Safety Report 16244578 (Version 1)
Quarter: 2019Q2

REPORT INFORMATION
  Report Type: Spontaneous
  Country: US (occurrence: US)
  Receive Date: 20190426
  Receipt Date: 20190426
  Transmission Date: 20190711
  Serious: Yes (Other)
  Sender: FDA-Public Use
  Company Number: US-PFIZER INC-2019174110

PATIENT
  Age: 69 Year
  Sex: Male

DRUGS (3)
  1. MILRINONE [Suspect]
     Active Substance: MILRINONE
     Indication: ATRIAL FIBRILLATION
  2. MILRINONE [Suspect]
     Active Substance: MILRINONE
     Indication: ISCHAEMIC CARDIOMYOPATHY
  3. MILRINONE [Suspect]
     Active Substance: MILRINONE
     Indication: LEFT VENTRICULAR FAILURE
     Dosage: UNK

REACTIONS (2)
  - Eosinophilia [Recovered/Resolved]
  - Eosinophilic cystitis [Recovered/Resolved]
